FAERS Safety Report 22011456 (Version 4)
Quarter: 2023Q1

REPORT INFORMATION
  Report Type: Spontaneous
  Country: IT (occurrence: IT)
  Receive Date: 20230220
  Receipt Date: 20230301
  Transmission Date: 20230417
  Serious: Yes (Death, Hospitalization)
  Sender: FDA-Public Use
  Company Number: None

PATIENT
  Age: 79 Year
  Sex: Female

DRUGS (13)
  1. METHOTREXATE SODIUM [Suspect]
     Active Substance: METHOTREXATE SODIUM
     Indication: Rheumatoid arthritis
     Dosage: 2.5 MG 2 TABLETS AT 8 AND AT 20 DAY (DAILY ADMINISTRATION OF 10 MG SINCE AT LEAST 29DEC2022)
     Route: 048
     Dates: start: 20221229, end: 20230204
  2. PREDNISONE [Concomitant]
     Active Substance: PREDNISONE
     Indication: Rheumatoid arthritis
     Dosage: 1 TABLET DAILY. HOME THERAPY
     Route: 048
  3. XELJANZ [Concomitant]
     Active Substance: TOFACITINIB CITRATE
     Indication: Rheumatoid arthritis
     Dosage: 1 TABLET AT 8 AND AT 20. HOME THERAPY
     Route: 048
  4. FOLIC ACID [Concomitant]
     Active Substance: FOLIC ACID
     Dosage: 1 CAPSULE PER WEEK. HOME THERAPY
     Route: 048
  5. FOSTER [Concomitant]
     Active Substance: BECLOMETHASONE\FORMOTEROL
     Dosage: HOME THERAPY
     Route: 055
  6. FUROSEMIDE [Concomitant]
     Active Substance: FUROSEMIDE
     Dosage: HOME THERAPY
     Dates: end: 20230204
  7. CHOLECALCIFEROL [Concomitant]
     Active Substance: CHOLECALCIFEROL
     Dosage: HOME THERAPY
  8. NEBIVOLOL [Concomitant]
     Active Substance: NEBIVOLOL
     Dosage: HOME THERAPY
     Route: 048
  9. MEDROL [Concomitant]
     Active Substance: METHYLPREDNISOLONE
     Dosage: FREQ:24 H; (4 MG - HALF TABLET AT 8.00)
  10. MEDROL [Concomitant]
     Active Substance: METHYLPREDNISOLONE
     Dosage: UNK
  11. LANSOPRAZOLE [Concomitant]
     Active Substance: LANSOPRAZOLE
     Dosage: HOME THERAPY
     Route: 048
  12. TAVOR (LORAZEPAM) [Concomitant]
     Active Substance: LORAZEPAM
     Dosage: HOME THERAPY
     Route: 048
  13. PALEXIA [Concomitant]
     Active Substance: TAPENTADOL HYDROCHLORIDE
     Dosage: HOME THERAPY
     Route: 048

REACTIONS (21)
  - Medication error [Fatal]
  - Toxicity to various agents [Fatal]
  - Diarrhoea [Fatal]
  - Pyrexia [Fatal]
  - Pancytopenia [Fatal]
  - Septic shock [Fatal]
  - Gastrointestinal inflammation [Fatal]
  - Rectal haemorrhage [Fatal]
  - Haemoptysis [Fatal]
  - Hepatorenal failure [Fatal]
  - Jaundice [Fatal]
  - COVID-19 pneumonia [Fatal]
  - Bone marrow failure [Fatal]
  - Myelosuppression [Fatal]
  - Asthenia [Fatal]
  - Sensory disturbance [Fatal]
  - Hypotension [Fatal]
  - Circulatory collapse [Fatal]
  - Dyspnoea [Fatal]
  - Sepsis [Fatal]
  - Decreased appetite [Fatal]

NARRATIVE: CASE EVENT DATE: 20221229
